FAERS Safety Report 8888642 (Version 1)
Quarter: 2012Q4

REPORT INFORMATION
  Report Type: 
  Country: US (occurrence: US)
  Receive Date: 20121106
  Receipt Date: 20121106
  Transmission Date: 20130627
  Serious: Yes (Hospitalization)
  Sender: FDA-Public Use
  Company Number: US-GLAXOSMITHKLINE-A0817870A

PATIENT
  Age: 75 Year
  Sex: Female

DRUGS (1)
  1. AVANDIA [Suspect]
     Indication: BLOOD GLUCOSE INCREASED
     Dosage: 4MG Twice per day
     Route: 048
     Dates: start: 2001, end: 2005

REACTIONS (2)
  - Cardiac failure congestive [Not Recovered/Not Resolved]
  - Cardiac disorder [Unknown]
